FAERS Safety Report 14322743 (Version 1)
Quarter: 2017Q4

REPORT INFORMATION
  Report Type: Spontaneous
  Country: AU (occurrence: AU)
  Receive Date: 20171225
  Receipt Date: 20171225
  Transmission Date: 20180321
  Serious: Yes (Other)
  Sender: FDA-Public Use
  Company Number: AU-BAXTER-2017BAX041984

PATIENT

DRUGS (2)
  1. HEPARIN SODIUM AND SODIUM CHLORIDE [Suspect]
     Active Substance: HEPARIN SODIUM
     Indication: PRODUCT USED FOR UNKNOWN INDICATION
     Dosage: IN 60 ML SYRINGE
     Route: 065
     Dates: start: 2017
  2. HEPARIN SODIUM AND SODIUM CHLORIDE [Suspect]
     Active Substance: HEPARIN SODIUM
     Dosage: IN 60 ML SYRINGE WITH DIFFERENT COMPOUNDED BATCH NUMBER
     Route: 065
     Dates: start: 201712

REACTIONS (1)
  - Drug effect decreased [Recovered/Resolved]

NARRATIVE: CASE EVENT DATE: 20171203
